FAERS Safety Report 9780968 (Version 2)
Quarter: 2014Q1

REPORT INFORMATION
  Report Type: Spontaneous
  Country: IT (occurrence: IT)
  Receive Date: 20131224
  Receipt Date: 20140123
  Transmission Date: 20141002
  Serious: Yes (Other)
  Sender: FDA-Public Use
  Company Number: IT-AMGEN-ITASP2013090150

PATIENT
  Age: 59 Year
  Sex: Female

DRUGS (5)
  1. ENBREL [Suspect]
     Indication: PSORIATIC ARTHROPATHY
     Dosage: 50 MG, WEEKLY
     Route: 058
     Dates: start: 20081101, end: 20131030
  2. ARAVA [Suspect]
     Indication: PSORIATIC ARTHROPATHY
     Dosage: 10 MG, DAILY
     Route: 048
     Dates: start: 20090101, end: 20131030
  3. DELTACORTENE [Concomitant]
     Indication: PSORIATIC ARTHROPATHY
     Dosage: UNK
  4. DIBASE [Concomitant]
     Indication: OSTEOPOROSIS PROPHYLAXIS
     Dosage: UNK
  5. ACTONEL [Concomitant]
     Indication: OSTEOPOROSIS PROPHYLAXIS
     Dosage: UNK

REACTIONS (1)
  - Adenocarcinoma gastric [Not Recovered/Not Resolved]
